FAERS Safety Report 12766673 (Version 3)
Quarter: 2016Q3

REPORT INFORMATION
  Report Type: Spontaneous
  Country: US (occurrence: US)
  Receive Date: 20160921
  Receipt Date: 20160926
  Transmission Date: 20161109
  Serious: Yes (Hospitalization, Other)
  Sender: FDA-Public Use
  Company Number: US-PFIZER INC-2016437840

PATIENT
  Age: 42 Year
  Sex: Female
  Weight: 77 kg

DRUGS (3)
  1. ZOLPIDEM [Concomitant]
     Active Substance: ZOLPIDEM\ZOLPIDEM TARTRATE
     Indication: SLEEP DISORDER
     Dosage: 10 MG, 1X/DAY, AT BEDTIME
     Route: 048
  2. LYRICA [Suspect]
     Active Substance: PREGABALIN
     Indication: OSTEOPOROSIS
  3. LYRICA [Suspect]
     Active Substance: PREGABALIN
     Indication: RHEUMATOID ARTHRITIS
     Dosage: 300 MG, 3X/DAY
     Route: 048
     Dates: end: 201609

REACTIONS (8)
  - Gun shot wound [Recovered/Resolved with Sequelae]
  - Product use issue [Unknown]
  - Overdose [Unknown]
  - Drug dose omission [Unknown]
  - Insomnia [Not Recovered/Not Resolved]
  - Feeling of body temperature change [Not Recovered/Not Resolved]
  - Fibromyalgia [Unknown]
  - Wound infection [Unknown]

NARRATIVE: CASE EVENT DATE: 2012
